FAERS Safety Report 9960295 (Version 1)
Quarter: 2014Q1

REPORT INFORMATION
  Report Type: Spontaneous
  Country: US (occurrence: None)
  Receive Date: 20140127
  Receipt Date: 20140127
  Transmission Date: 20141002
  Serious: Yes (Hospitalization)
  Sender: FDA-Public Use
  Company Number: 2013-01834

PATIENT
  Age: 54 Year
  Sex: Female

DRUGS (7)
  1. METFORMIN [Suspect]
     Indication: PRODUCT USED FOR UNKNOWN INDICATION
  2. ENALAPRIL (UNKNOWN) [Concomitant]
  3. GLIMEPIRIDE (UNKNOWN) [Concomitant]
  4. NIMESULIDE (UNKNOWN) [Concomitant]
  5. IMIPRAMINE (UNKNOWN) [Concomitant]
  6. ACETYLSALICYLIC ACID (ASPIRIN) (UNKNOWN) [Concomitant]
  7. IBUPROFEN (UNKNOWN) [Concomitant]

REACTIONS (1)
  - Lactic acidosis [None]
